FAERS Safety Report 12897920 (Version 1)
Quarter: 2016Q4

REPORT INFORMATION
  Report Type: Spontaneous
  Country: US (occurrence: US)
  Receive Date: 20161028
  Receipt Date: 20161028
  Transmission Date: 20170207
  Serious: No
  Sender: FDA-Public Use
  Company Number: None

PATIENT
  Age: 77 Year
  Sex: Male

DRUGS (3)
  1. NORTHERA [Suspect]
     Active Substance: DROXIDOPA
     Indication: PARKINSON^S DISEASE
     Dosage: 3  TABLETS THREE TIMES A DAY
     Dates: start: 20160902, end: 201610
  2. ATORVASTATIN [Concomitant]
     Active Substance: ATORVASTATIN
  3. NORTHERA [Suspect]
     Active Substance: DROXIDOPA
     Indication: ORTHOSTATIC HYPOTENSION
     Dosage: 3  TABLETS THREE TIMES A DAY
     Dates: start: 20160902, end: 201610

REACTIONS (1)
  - Hospice care [None]

NARRATIVE: CASE EVENT DATE: 201610
